FAERS Safety Report 7202226-0 (Version None)
Quarter: 2010Q4

REPORT INFORMATION
  Report Type: 
  Country: None (occurrence: None)
  Receive Date: 20101229
  Receipt Date: 20101216
  Transmission Date: 20110411
  Serious: Yes (Life-Threatening, Other)
  Sender: FDA-Public Use
  Company Number: PHHY2010DE88185

PATIENT
  Sex: Female
  Weight: 91 kg

DRUGS (12)
  1. GLEEVEC [Suspect]
     Indication: ACUTE LYMPHOCYTIC LEUKAEMIA
     Dosage: 600 MG DAILY
     Route: 048
     Dates: end: 20101206
  2. GLEEVEC [Suspect]
     Dosage: 400 MG DAILY
     Route: 048
     Dates: start: 20101207
  3. KEVATRIL [Concomitant]
  4. HALDOL [Concomitant]
  5. ATOSIL [Concomitant]
  6. DIFLUCAN [Concomitant]
  7. CIPRO [Concomitant]
  8. NEXIUM [Concomitant]
  9. KONAKION [Concomitant]
  10. DEXAMETHASONE [Concomitant]
  11. NEUPOGEN [Concomitant]
  12. MORPHIN HCL [Concomitant]

REACTIONS (4)
  - DIPLEGIA [None]
  - HEPATIC ENZYME INCREASED [None]
  - PARAPLEGIA [None]
  - PAROSMIA [None]
